FAERS Safety Report 8599718-9 (Version None)
Quarter: 2012Q3

REPORT INFORMATION
  Report Type: 
  Country: None (occurrence: None)
  Receive Date: 20120802
  Receipt Date: 20120723
  Transmission Date: 20120928
  Serious: Yes (Death)
  Sender: FDA-Public Use
  Company Number: EU-2012-10200

PATIENT
  Age: 62 Year
  Sex: Male

DRUGS (4)
  1. ELECTROLYTE SOLUTIONS SOLUTION [Concomitant]
  2. NACI (NACI) [Concomitant]
  3. SAMSCA [Suspect]
     Indication: HYPONATRAEMIA
     Dosage: 15 MG MILLIGRAM(S), DAILY DOSE, UNKNOWN; 30 MG MILLIGRAM(S), DAILY DOSE
     Dates: start: 20120614, end: 20120626
  4. SAMSCA [Suspect]
     Indication: HYPONATRAEMIA
     Dosage: 15 MG MILLIGRAM(S), DAILY DOSE, UNKNOWN; 30 MG MILLIGRAM(S), DAILY DOSE
     Dates: start: 20120612, end: 20120613

REACTIONS (2)
  - PNEUMONIA [None]
  - HYPERNATRAEMIA [None]
